FAERS Safety Report 26077638 (Version 1)
Quarter: 2025Q4

REPORT INFORMATION
  Report Type: Spontaneous
  Country: US (occurrence: US)
  Receive Date: 20251122
  Receipt Date: 20251122
  Transmission Date: 20260117
  Serious: Yes (Hospitalization, Other)
  Sender: PURACAP PHARMACEUTICAL LLC
  Company Number: US-PURACAP-US-2025EPCLIT01219

PATIENT
  Age: 62 Year
  Sex: Male

DRUGS (6)
  1. METHOCARBAMOL [Suspect]
     Active Substance: METHOCARBAMOL
     Indication: Pain management
     Route: 065
  2. LORAZEPAM [Suspect]
     Active Substance: LORAZEPAM
     Indication: Claustrophobia
     Route: 042
  3. LORAZEPAM [Suspect]
     Active Substance: LORAZEPAM
     Indication: Agitation
     Route: 042
  4. LORAZEPAM [Suspect]
     Active Substance: LORAZEPAM
     Route: 042
  5. OXYCODONE [Concomitant]
     Active Substance: OXYCODONE
     Indication: Pain
     Route: 065
  6. HYDROMORPHONE [Concomitant]
     Active Substance: HYDROMORPHONE
     Indication: Pain management
     Route: 042

REACTIONS (5)
  - Acute psychosis [Unknown]
  - Delirium [Unknown]
  - Intentional self-injury [Recovered/Resolved with Sequelae]
  - Paradoxical drug reaction [Unknown]
  - Product use in unapproved indication [Unknown]
